FAERS Safety Report 14498961 (Version 7)
Quarter: 2019Q1

REPORT INFORMATION
  Report Type: Spontaneous
  Country: US (occurrence: US)
  Receive Date: 20180207
  Receipt Date: 20190326
  Transmission Date: 20190417
  Serious: Yes (Hospitalization)
  Sender: FDA-Public Use
  Company Number: US-ACTELION-A-NJ2018-166839

PATIENT
  Age: 48 Year
  Sex: Male

DRUGS (8)
  1. LEVOTHYROXINE. [Concomitant]
     Active Substance: LEVOTHYROXINE
     Dosage: UNK
     Dates: start: 20180107
  2. OPSUMIT [Suspect]
     Active Substance: MACITENTAN
     Indication: PULMONARY ARTERIAL HYPERTENSION
     Dosage: 10 MG, QD
     Route: 048
     Dates: start: 20171212
  3. OPSUMIT [Suspect]
     Active Substance: MACITENTAN
     Dosage: 10 MG, QD
     Route: 048
  4. ZOLOFT [Concomitant]
     Active Substance: SERTRALINE HYDROCHLORIDE
     Dosage: UNK
     Dates: start: 20171225
  5. LISINOPRIL. [Concomitant]
     Active Substance: LISINOPRIL
     Dosage: UNK
     Dates: start: 20171225
  6. IMURAN [Concomitant]
     Active Substance: AZATHIOPRINE
     Dosage: UNK
     Dates: start: 20180113
  7. MAGNESIUM [Concomitant]
     Active Substance: MAGNESIUM
     Dosage: UNK
     Dates: start: 20181107
  8. PEPCID [Concomitant]
     Active Substance: FAMOTIDINE
     Dosage: UNK
     Dates: start: 20180107

REACTIONS (21)
  - Disorientation [Unknown]
  - Cough [Unknown]
  - Interstitial lung disease [Unknown]
  - Asthenia [Unknown]
  - Pulmonary arterial hypertension [Recovered/Resolved]
  - Hospitalisation [Unknown]
  - Dizziness [Unknown]
  - Syncope [Recovered/Resolved]
  - Myocardial infarction [Unknown]
  - Respiratory failure [Unknown]
  - Dyspnoea exertional [Unknown]
  - Confusional state [Unknown]
  - Hypoxia [Unknown]
  - Fall [Unknown]
  - Pneumonia [Unknown]
  - Mineral supplementation [Unknown]
  - Dyspnoea [Unknown]
  - Chest pain [Unknown]
  - Head injury [Unknown]
  - Fluid retention [Unknown]
  - Loss of consciousness [Unknown]

NARRATIVE: CASE EVENT DATE: 20171225
